FAERS Safety Report 5521804-8 (Version None)
Quarter: 2007Q4

REPORT INFORMATION
  Report Type: 
  Country: None (occurrence: None)
  Receive Date: 20071120
  Receipt Date: 20071114
  Transmission Date: 20080405
  Serious: Yes (Hospitalization)
  Sender: FDA-Public Use
  Company Number: JP-JNJFOC-20071103052

PATIENT
  Age: 71 Year

DRUGS (2)
  1. RISPERDAL [Suspect]
     Indication: DELIRIUM
     Route: 048
  2. DONEPEZIL HCL [Concomitant]

REACTIONS (2)
  - FEMUR FRACTURE [None]
  - MUSCLE RIGIDITY [None]
